FAERS Safety Report 7429718-3 (Version None)
Quarter: 2011Q2

REPORT INFORMATION
  Report Type: 
  Country: None (occurrence: None)
  Receive Date: 20110421
  Receipt Date: 20110412
  Transmission Date: 20111010
  Serious: Yes (Other)
  Sender: FDA-Public Use
  Company Number: US-JNJFOC-20110405576

PATIENT
  Sex: Female
  Weight: 45.36 kg

DRUGS (3)
  1. DURAGESIC [Suspect]
     Route: 062
  2. FENTANYL-100 [Suspect]
     Indication: PAIN
     Route: 062
  3. DURAGESIC [Suspect]
     Indication: PAIN
     Dosage: NDC#50458-0094-05
     Route: 062

REACTIONS (5)
  - WEIGHT INCREASED [None]
  - SJOGREN'S SYNDROME [None]
  - APPLICATION SITE PRURITUS [None]
  - APPLICATION SITE BURN [None]
  - APPLICATION SITE REACTION [None]
